FAERS Safety Report 16184848 (Version 1)
Quarter: 2019Q2

REPORT INFORMATION
  Report Type: Spontaneous
  Country: US (occurrence: US)
  Receive Date: 20190411
  Receipt Date: 20190411
  Transmission Date: 20190711
  Serious: No
  Sender: FDA-Public Use
  Company Number: US-PFIZER INC-2019153162

PATIENT
  Age: 79 Year
  Sex: Female
  Weight: 38.55 kg

DRUGS (1)
  1. GABAPENTIN. [Suspect]
     Active Substance: GABAPENTIN

REACTIONS (2)
  - Muscle twitching [Unknown]
  - Drug hypersensitivity [Unknown]
